FAERS Safety Report 10626213 (Version 1)
Quarter: 2014Q4

REPORT INFORMATION
  Report Type: Spontaneous
  Country: JP (occurrence: JP)
  Receive Date: 20141204
  Receipt Date: 20141204
  Transmission Date: 20150529
  Serious: Yes (Death)
  Sender: FDA-Public Use
  Company Number: JP-WATSON-2014-26045

PATIENT
  Age: 52 Year
  Sex: Female

DRUGS (1)
  1. RISPERIDONE (UNKNOWN) [Suspect]
     Active Substance: RISPERIDONE
     Indication: SUICIDE ATTEMPT
     Dosage: 82 MG, SINGLE
     Route: 048

REACTIONS (5)
  - Alcohol interaction [Fatal]
  - Toxicity to various agents [Fatal]
  - Arrhythmia [Fatal]
  - Overdose [Fatal]
  - Completed suicide [Fatal]
